FAERS Safety Report 7236606-4 (Version None)
Quarter: 2011Q1

REPORT INFORMATION
  Report Type: 
  Country: None (occurrence: None)
  Receive Date: 20110120
  Receipt Date: 20100624
  Transmission Date: 20110831
  Serious: No
  Sender: FDA-Public Use
  Company Number: US-BAUSCH-2010BL003427

PATIENT
  Age: 75 Year
  Sex: Female
  Weight: 53 kg

DRUGS (1)
  1. TOBRAMYCIN [Suspect]
     Indication: POSTOPERATIVE CARE
     Route: 047
     Dates: start: 20100412, end: 20100426

REACTIONS (3)
  - PHOTOPHOBIA [None]
  - MYOPIA [None]
  - LACRIMATION INCREASED [None]
